FAERS Safety Report 26191747 (Version 1)
Quarter: 2025Q4

REPORT INFORMATION
  Report Type: Report from Study
  Country: ZA (occurrence: ZA)
  Receive Date: 20251223
  Receipt Date: 20251223
  Transmission Date: 20260118
  Serious: Yes (Hospitalization)
  Sender: REGENERON
  Company Number: ZA-BAYER-2025A040374

PATIENT
  Sex: Female

DRUGS (2)
  1. EYLEA [Suspect]
     Active Substance: AFLIBERCEPT
     Indication: Neovascular age-related macular degeneration
     Dosage: 1 X VIAL, SOLUTION FOR INJECTION, 40 MG/ML
     Dates: start: 20230307
  2. EYLEA [Suspect]
     Active Substance: AFLIBERCEPT
     Dosage: 1 X VIAL, SOLUTION FOR INJECTION, 40 MG/ML
     Dates: start: 20240307

REACTIONS (1)
  - Hospitalisation [Unknown]
